FAERS Safety Report 11024974 (Version 1)
Quarter: 2015Q2

REPORT INFORMATION
  Report Type: Spontaneous
  Country: US (occurrence: US)
  Receive Date: 20150414
  Receipt Date: 20150414
  Transmission Date: 20150821
  Serious: Yes (Hospitalization, Other)
  Sender: FDA-Public Use
  Company Number: US-MALLINCKRODT-T201501892

PATIENT
  Sex: Male
  Weight: 104 kg

DRUGS (1)
  1. H.P. ACTHAR [Suspect]
     Active Substance: CORTICOTROPIN
     Indication: RHEUMATOID ARTHRITIS
     Dosage: 80 UNITS, TWICE WEEKLY
     Route: 065

REACTIONS (8)
  - Decreased appetite [Recovered/Resolved]
  - Atrial fibrillation [Not Recovered/Not Resolved]
  - Blood pressure increased [Not Recovered/Not Resolved]
  - Pancreatitis [Recovered/Resolved]
  - Incorrect drug administration duration [Unknown]
  - Confusional state [Recovered/Resolved]
  - Influenza like illness [Recovered/Resolved]
  - Weight decreased [Recovered/Resolved]
